FAERS Safety Report 5065485-9 (Version None)
Quarter: 2006Q3

REPORT INFORMATION
  Report Type: 
  Country: None (occurrence: None)
  Receive Date: 20060731
  Receipt Date: 20060515
  Transmission Date: 20061208
  Serious: Yes (Other)
  Sender: FDA-Public Use
  Company Number: PHEH2006US07595

PATIENT
  Age: 53 Year
  Sex: Female
  Weight: 84.353 kg

DRUGS (9)
  1. TAXOTERE [Concomitant]
     Indication: BREAST CANCER
     Dosage: 60MG Q 3 OUT OF 4WK
     Dates: start: 20030301, end: 20031001
  2. DECADRON                                /CAN/ [Concomitant]
     Dates: start: 20030301, end: 20031001
  3. DECADRON                                /CAN/ [Concomitant]
     Dosage: 20MG Q3WK
     Dates: start: 20041101, end: 20060606
  4. GEMZAR [Concomitant]
     Indication: BREAST CANCER
     Dosage: 1980MG Q3WK
     Dates: start: 20041101, end: 20060613
  5. TAXOL [Concomitant]
     Indication: BREAST CANCER
     Dosage: 347 MG Q3WK
     Dates: start: 20041101, end: 20060613
  6. ZOMETA [Suspect]
     Indication: BREAST CANCER METASTATIC
     Dosage: 4MG Q4WK
     Dates: start: 20030220, end: 20060621
  7. ZOMETA [Suspect]
     Dosage: 4MG Q8WK
     Dates: start: 20060621
  8. FASLODEX [Concomitant]
     Dosage: 250 MG, UNK
     Route: 030
  9. ARANESP [Concomitant]
     Dosage: 300 UNK, UNK
     Route: 058

REACTIONS (8)
  - BONE DISORDER [None]
  - DENTAL CARIES [None]
  - GINGIVAL ULCERATION [None]
  - GINGIVITIS [None]
  - IMPAIRED HEALING [None]
  - MUCOSAL INFLAMMATION [None]
  - OSTEONECROSIS [None]
  - TOOTH EXTRACTION [None]
